FAERS Safety Report 7808230-3 (Version None)
Quarter: 2011Q4

REPORT INFORMATION
  Report Type: 
  Country: None (occurrence: None)
  Receive Date: 20111011
  Receipt Date: 20111010
  Transmission Date: 20120403
  Serious: Yes (Death, Hospitalization)
  Sender: FDA-Public Use
  Company Number: IT-BRISTOL-MYERS SQUIBB COMPANY-16114621

PATIENT
  Sex: Female

DRUGS (1)
  1. IPILIMUMAB [Suspect]
     Indication: MALIGNANT MELANOMA
     Dosage: FORM:INFUSION
     Route: 042
     Dates: start: 20110610, end: 20110610

REACTIONS (4)
  - NEOPLASM PROGRESSION [None]
  - BONE MARROW FAILURE [None]
  - NEOPLASM MALIGNANT [None]
  - MALIGNANT MELANOMA [None]
